FAERS Safety Report 16571390 (Version 1)
Quarter: 2019Q3

REPORT INFORMATION
  Report Type: Spontaneous
  Country: US (occurrence: US)
  Receive Date: 20190712
  Receipt Date: 20190712
  Transmission Date: 20191004
  Serious: Yes (Hospitalization, Other)
  Sender: FDA-Public Use
  Company Number: None

PATIENT
  Age: 42 Year
  Sex: Female
  Weight: 85.5 kg

DRUGS (2)
  1. TYLENOL [Concomitant]
     Active Substance: ACETAMINOPHEN
  2. MIRALAX [Suspect]
     Active Substance: POLYETHYLENE GLYCOL 3350
     Indication: CONSTIPATION
     Route: 048
     Dates: start: 20170623, end: 20170623

REACTIONS (14)
  - Fibromyalgia [None]
  - Pain [None]
  - Irritable bowel syndrome [None]
  - Nervous system disorder [None]
  - Abdominal discomfort [None]
  - Tremor [None]
  - Neck pain [None]
  - Cholecystectomy [None]
  - Speech disorder [None]
  - Paraesthesia [None]
  - Hypersensitivity [None]
  - Loss of consciousness [None]
  - Cholelithiasis [None]
  - Movement disorder [None]

NARRATIVE: CASE EVENT DATE: 20170623
